FAERS Safety Report 8776088 (Version 3)
Quarter: 2012Q4

REPORT INFORMATION
  Report Type: 
  Country: US (occurrence: US)
  Receive Date: 20120910
  Receipt Date: 20121203
  Transmission Date: 20130627
  Serious: Yes (Hospitalization, Disabling, Other)
  Sender: FDA-Public Use
  Company Number: US-009507513-1103USA01557

PATIENT

DRUGS (4)
  1. FOSAMAX [Suspect]
     Indication: OSTEOPOROSIS
     Dosage: 10 mg, UNK
     Route: 048
     Dates: start: 2001, end: 2009
  2. FOSAMAX [Suspect]
     Dosage: 70 mg, QW
     Route: 048
     Dates: start: 2001, end: 2009
  3. FOSAMAX [Suspect]
     Indication: OSTEOPOROSIS
     Dosage: UNK
     Route: 048
     Dates: start: 2008
  4. FOSAMAX [Suspect]
     Indication: OSTEOPENIA
     Dosage: 70 mg, UNK
     Route: 048

REACTIONS (58)
  - Open reduction of fracture [Recovered/Resolved]
  - Fall [Unknown]
  - Respiratory failure [Unknown]
  - Blood disorder [Unknown]
  - Femur fracture [Unknown]
  - Bone density decreased [Unknown]
  - Fracture nonunion [Unknown]
  - Femur fracture [Unknown]
  - Renal failure [Unknown]
  - Femur fracture [Recovered/Resolved]
  - Chronic obstructive pulmonary disease [Not Recovered/Not Resolved]
  - Herpes zoster [Unknown]
  - Hypoaesthesia [Unknown]
  - Hypertension [Unknown]
  - Left ventricular dysfunction [Unknown]
  - Metabolic syndrome [Unknown]
  - Sleep apnoea syndrome [Unknown]
  - Rhinitis [Unknown]
  - Sjogren^s syndrome [Unknown]
  - Nasal dryness [Unknown]
  - Muscular weakness [Unknown]
  - Osteoarthritis [Unknown]
  - Herpes zoster infection neurological [Unknown]
  - Cataract operation [Unknown]
  - Nocturia [Unknown]
  - Lumbar spinal stenosis [Unknown]
  - Spinal claudication [Unknown]
  - Spinal compression fracture [Unknown]
  - Hypercholesterolaemia [Unknown]
  - Scapula fracture [Unknown]
  - Rib fracture [Unknown]
  - Rotator cuff syndrome [Not Recovered/Not Resolved]
  - Asthma [Not Recovered/Not Resolved]
  - Emphysema [Unknown]
  - Arteriosclerosis coronary artery [Unknown]
  - Stress fracture [Unknown]
  - Sedation [Unknown]
  - Hypercapnia [Unknown]
  - Infusion site bruising [Unknown]
  - Incisional drainage [Unknown]
  - Incision site erythema [Unknown]
  - Venous thrombosis limb [Unknown]
  - Depression [Unknown]
  - White blood cell count increased [Unknown]
  - Muscle strain [Unknown]
  - Cataract [Unknown]
  - Cataract [Unknown]
  - Cataract operation [Unknown]
  - Muscular weakness [Unknown]
  - Fatigue [Unknown]
  - Gait disturbance [Unknown]
  - Facial asymmetry [Unknown]
  - Balance disorder [Unknown]
  - Pain in extremity [Unknown]
  - Gastrooesophageal reflux disease [Unknown]
  - Oedema peripheral [Unknown]
  - Back pain [Not Recovered/Not Resolved]
  - Pain in extremity [Unknown]
